FAERS Safety Report 4429743-0 (Version None)
Quarter: 2004Q3

REPORT INFORMATION
  Report Type: 
  Country: None (occurrence: None)
  Receive Date: 20040816
  Receipt Date: 20040805
  Transmission Date: 20050211
  Serious: Yes (Hospitalization)
  Sender: FDA-Public Use
  Company Number: STA-AE-04-MTX-345

PATIENT
  Age: 51 Year
  Sex: Female

DRUGS (3)
  1. METHOTREXATE [Suspect]
     Indication: RHEUMATOID ARTHRITIS
     Dosage: 20 MG 1 X PER 1 WK, ORAL
     Route: 048
     Dates: start: 20020101
  2. REMICADE [Suspect]
     Indication: RHEUMATOID ARTHRITIS
     Dosage: 200 MG 1 X PER 8 WK, INTRAVENOUS
     Route: 042
     Dates: start: 20030530, end: 20040112
  3. REMICADE [Suspect]
     Indication: RHEUMATOID ARTHRITIS
     Dosage: 200 MG 1 X PER 8 WK, INTRAVENOUS
     Route: 042
     Dates: start: 20040503

REACTIONS (4)
  - BONE CYST [None]
  - CELLULITIS [None]
  - DENTAL CARIES [None]
  - PERIORBITAL OEDEMA [None]
